FAERS Safety Report 11323924 (Version 1)
Quarter: 2015Q3

REPORT INFORMATION
  Report Type: Spontaneous
  Country: US (occurrence: None)
  Receive Date: 20150729
  Receipt Date: 20150729
  Transmission Date: 20151125
  Serious: No
  Sender: FDA-Public Use
  Company Number: None

PATIENT
  Age: 34 Year
  Sex: Male

DRUGS (1)
  1. OTEZLA [Suspect]
     Active Substance: APREMILAST
     Indication: PSORIASIS
     Route: 048

REACTIONS (6)
  - Muscular weakness [None]
  - Headache [None]
  - Asthenia [None]
  - Diarrhoea [None]
  - Anxiety [None]
  - Myalgia [None]

NARRATIVE: CASE EVENT DATE: 20150727
